FAERS Safety Report 23701710 (Version 1)
Quarter: 2024Q2

REPORT INFORMATION
  Report Type: Spontaneous
  Country: JP (occurrence: JP)
  Receive Date: 20240403
  Receipt Date: 20240403
  Transmission Date: 20240716
  Serious: Yes (Other)
  Sender: FDA-Public Use
  Company Number: JP-CLINIGEN-JP-CLI-2024-009774

PATIENT
  Age: 63 Year
  Sex: Male

DRUGS (3)
  1. FOSCARNET SODIUM [Suspect]
     Active Substance: FOSCARNET SODIUM
     Indication: Human herpesvirus 6 encephalitis
     Dosage: UNK
  2. AMPHOTERICIN B [Suspect]
     Active Substance: AMPHOTERICIN B
     Indication: Bronchopulmonary aspergillosis
  3. LETERMOVIR [Concomitant]
     Active Substance: LETERMOVIR
     Indication: Antiviral prophylaxis

REACTIONS (3)
  - Encephalopathy [Unknown]
  - Seizure [Unknown]
  - Nephropathy toxic [Unknown]
